FAERS Safety Report 10452750 (Version 2)
Quarter: 2014Q3

REPORT INFORMATION
  Report Type: Spontaneous
  Country: PL (occurrence: PL)
  Receive Date: 20140915
  Receipt Date: 20140915
  Transmission Date: 20150326
  Serious: Yes (Other)
  Sender: FDA-Public Use
  Company Number: PL-ABBVIE-14P-129-1275599-00

PATIENT
  Sex: Female

DRUGS (10)
  1. LEVOTHYROXINE [Interacting]
     Active Substance: LEVOTHYROXINE
     Indication: HYPOTHYROIDISM
  2. LEVOTHYROXINE [Interacting]
     Active Substance: LEVOTHYROXINE
  3. LEVOTHYROXINE [Interacting]
     Active Substance: LEVOTHYROXINE
  4. LEVOTHYROXINE [Interacting]
     Active Substance: LEVOTHYROXINE
  5. SODIUM VALPROATE [Suspect]
     Active Substance: VALPROATE SODIUM
     Indication: TRIGEMINAL NEURALGIA
  6. LEVOTHYROXINE [Interacting]
     Active Substance: LEVOTHYROXINE
  7. LEVOTHYROXINE [Interacting]
     Active Substance: LEVOTHYROXINE
  8. LEVOTHYROXINE [Interacting]
     Active Substance: LEVOTHYROXINE
  9. SODIUM VALPROATE [Interacting]
     Active Substance: VALPROATE SODIUM
  10. LEVOTHYROXINE [Interacting]
     Active Substance: LEVOTHYROXINE

REACTIONS (2)
  - Hypothyroidism [Recovered/Resolved]
  - Drug interaction [Recovered/Resolved]
